FAERS Safety Report 4370084-8 (Version None)
Quarter: 2004Q2

REPORT INFORMATION
  Report Type: 
  Country: None (occurrence: None)
  Receive Date: 20040527
  Receipt Date: 20040517
  Transmission Date: 20050107
  Serious: Yes (Hospitalization)
  Sender: FDA-Public Use
  Company Number: CA-JNJFOC-20040205884

PATIENT
  Age: 47 Year
  Sex: Female

DRUGS (4)
  1. REMICADE [Suspect]
     Indication: CROHN'S DISEASE
     Dosage: 300 MG, INTRAVENOUS
     Route: 042
     Dates: start: 20040119
  2. IMURAN [Concomitant]
  3. PANTASA (PANTAS) [Concomitant]
  4. DOMPERIDONE (DOMPERIDONE) [Concomitant]

REACTIONS (5)
  - DIZZINESS [None]
  - INTESTINAL PERFORATION [None]
  - NASOPHARYNGITIS [None]
  - PRURITUS [None]
  - VOMITING [None]
